FAERS Safety Report 20661479 (Version 2)
Quarter: 2022Q2

REPORT INFORMATION
  Report Type: Spontaneous
  Country: JP (occurrence: JP)
  Receive Date: 20220401
  Receipt Date: 20220419
  Transmission Date: 20220721
  Serious: Yes (Hospitalization, Other)
  Sender: FDA-Public Use
  Company Number: JP-NOVOPROD-904263

PATIENT
  Age: 6 Decade
  Sex: Male
  Weight: 85 kg

DRUGS (2)
  1. COAGULATION FACTOR IX (RECOMBINANT), GLYCOPEGYLATED [Suspect]
     Active Substance: COAGULATION FACTOR IX (RECOMBINANT), GLYCOPEGYLATED
     Indication: Factor IX deficiency
     Dosage: 2000IU
     Route: 042
     Dates: start: 201910
  2. COAGULATION FACTOR IX (RECOMBINANT), GLYCOPEGYLATED [Suspect]
     Active Substance: COAGULATION FACTOR IX (RECOMBINANT), GLYCOPEGYLATED
     Indication: Factor IX deficiency
     Dosage: UNK
     Route: 042
     Dates: start: 201910

REACTIONS (1)
  - Spinal stenosis [Recovered/Resolved]
